FAERS Safety Report 6646266-9 (Version None)
Quarter: 2010Q1

REPORT INFORMATION
  Report Type: 
  Country: None (occurrence: None)
  Receive Date: 20100323
  Receipt Date: 20100315
  Transmission Date: 20100710
  Serious: Yes (Death, Hospitalization)
  Sender: FDA-Public Use
  Company Number: JP-BAYER-200911271BYL

PATIENT
  Age: 68 Year
  Sex: Male
  Weight: 51 kg

DRUGS (33)
  1. NEXAVAR [Suspect]
     Indication: RENAL CELL CARCINOMA
     Dosage: TOTAL DAILY DOSE: 800 MG  UNIT DOSE: 200 MG
     Route: 048
     Dates: start: 20090210, end: 20090401
  2. SOLITA T [Concomitant]
     Dosage: 500-1000ML
     Route: 041
     Dates: start: 20090116, end: 20090324
  3. PEMIROC [Concomitant]
     Dosage: 1-2DF
     Route: 042
     Dates: start: 20090116, end: 20090401
  4. VEEN D [Concomitant]
     Dosage: 500-1000ML
     Route: 041
     Dates: start: 20090116, end: 20090401
  5. 10% SODIUM CHLORIDE [Concomitant]
     Dosage: 40-80ML
     Route: 041
     Dates: start: 20090217, end: 20090324
  6. ISOTONIC SODIUM CHLORIDE SOLUTION [Concomitant]
     Dosage: 200-500ML
     Route: 041
     Dates: start: 20090219, end: 20090330
  7. ASPARA POTASSIUM [Concomitant]
     Dosage: 20-40ML
     Route: 042
     Dates: start: 20090306, end: 20090330
  8. NEOPAREN [Concomitant]
     Dosage: UNIT DOSE: 1000 ML
     Route: 042
     Dates: start: 20090328, end: 20090330
  9. ELEMENMIC [Concomitant]
     Dosage: UNIT DOSE: 2 ML
     Route: 042
     Dates: start: 20090328, end: 20090330
  10. FAMOTIDINE [Concomitant]
     Dosage: UNIT DOSE: 20 MG
     Route: 042
     Dates: start: 20090328, end: 20090330
  11. INTRALIPID 10% [Concomitant]
     Dosage: TOTAL DAILY DOSE: 100 ML  UNIT DOSE: 100 ML
     Route: 042
     Dates: start: 20090330
  12. XYLOCAINE [Concomitant]
     Dosage: UNIT DOSE: 5 ML
     Route: 042
     Dates: start: 20090331, end: 20090331
  13. ACTIT [Concomitant]
     Route: 042
     Dates: start: 20090401, end: 20090401
  14. SOLITA T [Concomitant]
     Dosage: UNIT DOSE: 500 ML
     Route: 041
     Dates: start: 20090405, end: 20090405
  15. ZANTAC [Concomitant]
     Dosage: TOTAL DAILY DOSE: 150 MG  UNIT DOSE: 150 MG
     Route: 048
     Dates: start: 20090123, end: 20090325
  16. LAXOBERON [Concomitant]
     Dosage: TOTAL DAILY DOSE: 2.5 MG  UNIT DOSE: 2.5 MG
     Route: 048
     Dates: start: 20090123, end: 20090311
  17. MAGMITT [Concomitant]
     Dosage: TOTAL DAILY DOSE: 990 MG  UNIT DOSE: 330 MG
     Route: 048
     Dates: start: 20081209, end: 20090311
  18. LENDORMIN D [Concomitant]
     Dosage: TOTAL DAILY DOSE: 0.25 MG  UNIT DOSE: 0.25 MG
     Route: 048
     Dates: start: 20081209
  19. PANTOSIN [Concomitant]
     Dosage: TOTAL DAILY DOSE: 100 MG  UNIT DOSE: 100 MG
     Route: 048
     Dates: start: 20090106, end: 20090325
  20. MOBIC [Concomitant]
     Dosage: TOTAL DAILY DOSE: 10 MG  UNIT DOSE: 10 MG
     Route: 048
     Dates: start: 20090123, end: 20090325
  21. DAI-KENCHU-TO [Concomitant]
     Dosage: TOTAL DAILY DOSE: 7.5 G  UNIT DOSE: 2.5 G
     Route: 048
     Dates: start: 20090117, end: 20090210
  22. OXYCONTIN [Concomitant]
     Dosage: 5-30MG
     Route: 048
     Dates: start: 20090124, end: 20090210
  23. OPSO [Concomitant]
     Dosage: 5-10MG
     Route: 048
     Dates: start: 20090116
  24. PROCHLORPERAZINE [Concomitant]
     Dosage: UNIT DOSE: 5 MG
     Route: 048
     Dates: start: 20090217
  25. LAC B [Concomitant]
     Dosage: TOTAL DAILY DOSE: 3 G  UNIT DOSE: 1 %
     Route: 048
     Dates: start: 20090218, end: 20090224
  26. LAC B [Concomitant]
     Dosage: TOTAL DAILY DOSE: 3 G  UNIT DOSE: 1 %
     Route: 048
     Dates: start: 20090226, end: 20090325
  27. LAC B [Concomitant]
     Dosage: TOTAL DAILY DOSE: 1 G  UNIT DOSE: 1 %
     Route: 048
     Dates: start: 20090225, end: 20090225
  28. NAUZELIN [Concomitant]
     Dosage: 60-90MG
     Route: 054
     Dates: start: 20090217
  29. OXINORM [Concomitant]
     Dosage: UNIT DOSE: 0.5 %
     Route: 048
     Dates: start: 20090311
  30. MS CONTIN [Concomitant]
     Dosage: TOTAL DAILY DOSE: 20 MG  UNIT DOSE: 10 MG
     Route: 048
     Dates: start: 20090317
  31. FENTANYL CITRATE [Concomitant]
     Dosage: TOTAL DAILY DOSE: 12.6 MG
     Route: 062
     Dates: start: 20090317
  32. LOPEMIN [Concomitant]
     Dosage: TOTAL DAILY DOSE: 1 MG  UNIT DOSE: 1 MG
     Route: 048
     Dates: start: 20090319
  33. SERENACE [Concomitant]
     Dosage: TOTAL DAILY DOSE: 0.75 MG  UNIT DOSE: 0.75 MG
     Route: 048
     Dates: start: 20090329

REACTIONS (3)
  - HEPATIC FUNCTION ABNORMAL [None]
  - PLEURAL EFFUSION [None]
  - RENAL CELL CARCINOMA [None]
